FAERS Safety Report 26135425 (Version 2)
Quarter: 2025Q4

REPORT INFORMATION
  Report Type: Spontaneous
  Country: US (occurrence: US)
  Receive Date: 20251209
  Receipt Date: 20251210
  Transmission Date: 20260118
  Serious: Yes (Death, Hospitalization, Other)
  Sender: BIOVITRUM
  Company Number: US-BIOVITRUM-2025-US-017225

PATIENT
  Age: 7 Decade
  Sex: Male

DRUGS (1)
  1. EMAPALUMAB [Suspect]
     Active Substance: EMAPALUMAB
     Indication: Haemophagocytic lymphohistiocytosis

REACTIONS (4)
  - Haemophagocytic lymphohistiocytosis [Fatal]
  - Condition aggravated [Fatal]
  - Fungal infection [Unknown]
  - Off label use [Recovered/Resolved]

NARRATIVE: CASE EVENT DATE: 20251201
